FAERS Safety Report 6091188-8 (Version None)
Quarter: 2009Q1

REPORT INFORMATION
  Report Type: 
  Country: None (occurrence: None)
  Receive Date: 20090220
  Receipt Date: 20090220
  Transmission Date: 20090719
  Serious: No
  Sender: FDA-Public Use
  Company Number: None

PATIENT
  Sex: Male
  Weight: 122.4712 kg

DRUGS (1)
  1. LEVEMIR [Suspect]
     Indication: DIABETES MELLITUS
     Dosage: 60 UNITS QHS SQ
     Route: 058
     Dates: start: 20090203, end: 20090204

REACTIONS (5)
  - BURNING SENSATION [None]
  - INJECTION SITE MASS [None]
  - INJECTION SITE PAIN [None]
  - MIDDLE INSOMNIA [None]
  - SKIN REACTION [None]
